FAERS Safety Report 7451392-0 (Version None)
Quarter: 2011Q2

REPORT INFORMATION
  Report Type: 
  Country: None (occurrence: None)
  Receive Date: 20110502
  Receipt Date: 20110428
  Transmission Date: 20111010
  Serious: Yes (Other)
  Sender: FDA-Public Use
  Company Number: US-PFIZER INC-2011092182

PATIENT
  Sex: Male
  Weight: 118 kg

DRUGS (13)
  1. VITAMIN C [Concomitant]
     Dosage: UNK
  2. GLUCOSAMINE HYDROCHLORIDE/CHONDROITIN SULFATE [Concomitant]
     Dosage: UNK, 1X/DAY
  3. PROCARDIA XL [Suspect]
     Indication: HYPERTENSION
     Dosage: 30 MG, 1X/DAY
     Route: 048
  4. FLAXSEED OIL [Concomitant]
     Dosage: UNK
  5. ASPIRIN [Concomitant]
     Dosage: 325 MG, 1X/DAY
  6. GARLIC [Concomitant]
     Dosage: UNK
  7. ONE-A-DAY [Concomitant]
     Dosage: UNK
  8. POTASSIUM [Concomitant]
     Dosage: 20 MEQ, UNK
  9. FLOMAX [Concomitant]
     Dosage: 0.4 MG, 1X/DAY
  10. DIOVAN [Concomitant]
     Indication: HYPERTENSION
     Dosage: 320 MG, 1X/DAY
  11. VITAMIN B-12 [Concomitant]
     Dosage: UNK
  12. ALDACTONE [Concomitant]
     Indication: HYPERTENSION
     Dosage: 30 MG, 1X/DAY
  13. VITAMIN E [Concomitant]
     Dosage: UNK

REACTIONS (4)
  - GASTROOESOPHAGEAL REFLUX DISEASE [None]
  - BACK PAIN [None]
  - ARTHROPATHY [None]
  - NECK PAIN [None]
